FAERS Safety Report 16568011 (Version 1)
Quarter: 2019Q3

REPORT INFORMATION
  Report Type: Spontaneous
  Country: DE (occurrence: DE)
  Receive Date: 20190712
  Receipt Date: 20190712
  Transmission Date: 20191004
  Serious: Yes (Hospitalization)
  Sender: FDA-Public Use
  Company Number: DE-TEVA-2019-DE-1075373

PATIENT
  Age: 76 Year
  Sex: Male
  Weight: 75 kg

DRUGS (8)
  1. METOPROLOL SUCCINAT [Concomitant]
     Dosage: 95 MG, 1-0-1, TABLETS
     Route: 048
  2. PANTOPRAZOL [Concomitant]
     Active Substance: PANTOPRAZOLE SODIUM
     Dosage: 40 MG, 1-0-0, TABLETS
     Route: 048
  3. TORASEMID [Suspect]
     Active Substance: TORSEMIDE
     Dosage: 40 MG, 1-0-0, TABLETS
     Route: 048
  4. SIMVASTATIN. [Concomitant]
     Active Substance: SIMVASTATIN
     Dosage: 10 MG, 0-0-1, TABLETS
     Route: 048
  5. KALIUMCHLORID [Concomitant]
     Active Substance: POTASSIUM CHLORIDE
     Dosage: 8 MMOL/L, 1-1-1
     Route: 048
  6. TAMSULOSIN [Concomitant]
     Active Substance: TAMSULOSIN
     Dosage: 0.4 MG, 0-0-1
     Route: 048
  7. AMIODARON [Concomitant]
     Active Substance: AMIODARONE
     Dosage: 200 MG, 1 / 2-0-0, TABLETS
     Route: 048
  8. ACETYLSALICYLS?URE [Concomitant]
     Active Substance: ASPIRIN
     Dosage: 100 MG, 1-0-0, TABLETS
     Route: 048

REACTIONS (5)
  - Pyrexia [Unknown]
  - Dehydration [Unknown]
  - Acute kidney injury [Unknown]
  - Hypokalaemia [Unknown]
  - Cough [Unknown]
